FAERS Safety Report 6921440-2 (Version None)
Quarter: 2010Q3

REPORT INFORMATION
  Report Type: 
  Country: None (occurrence: None)
  Receive Date: 20100812
  Receipt Date: 20091030
  Transmission Date: 20110219
  Serious: No
  Sender: FDA-Public Use
  Company Number: A0814174A

PATIENT
  Age: 88 Year
  Sex: Female

DRUGS (1)
  1. TAGAMET HB 200 [Suspect]
     Route: 048
     Dates: start: 20091028, end: 20091029

REACTIONS (1)
  - DIARRHOEA [None]
